FAERS Safety Report 8957890 (Version 1)
Quarter: 2012Q4

REPORT INFORMATION
  Report Type: 
  Country: AE (occurrence: AE)
  Receive Date: 20121211
  Receipt Date: 20121211
  Transmission Date: 20130627
  Serious: Yes (Other)
  Sender: FDA-Public Use
  Company Number: AE-WATSON-2012-21470

PATIENT
  Age: 35 Year
  Sex: Male

DRUGS (4)
  1. CLOBETASOL PROPIONATE [Suspect]
     Indication: DERMATITIS ALLERGIC
     Dosage: UNK, unknown
     Route: 061
  2. BETAMETHASONE [Suspect]
     Indication: DERMATITIS ALLERGIC
     Dosage: UNK, unknown
     Route: 061
  3. TERBINAFINE HYDROCHLORIDE [Suspect]
     Indication: TRICHOPHYTOSIS
     Dosage: 250 mg, daily
     Route: 065
  4. PREDNISOLONE [Suspect]
     Indication: KERION
     Dosage: 0.5 mg/kg, unknown
     Route: 048

REACTIONS (4)
  - Psoriasis [Recovered/Resolved]
  - Kerion [Recovered/Resolved]
  - Trichophytosis [Recovered/Resolved]
  - Infection masked [Recovered/Resolved]
